FAERS Safety Report 4448260-5 (Version None)
Quarter: 2004Q3

REPORT INFORMATION
  Report Type: 
  Country: None (occurrence: None)
  Receive Date: 20040910
  Receipt Date: 20040824
  Transmission Date: 20050211
  Serious: No
  Sender: FDA-Public Use
  Company Number: CART-10368

PATIENT
  Age: 18 Year
  Sex: Female

DRUGS (2)
  1. CARTICEL [Suspect]
     Indication: BONE DISORDER
     Dosage: 1 NA ONCE IS
     Dates: start: 19990802, end: 19990802
  2. CARTICEL [Suspect]
     Indication: BONE DISORDER
     Dosage: 1 NA ONCE IS
     Dates: start: 20000128, end: 20000128

REACTIONS (6)
  - BONE DISORDER [None]
  - BONE GRAFT LYSIS [None]
  - GRAFT COMPLICATION [None]
  - JOINT ADHESION [None]
  - PERIARTHRITIS [None]
  - TRANSPLANT FAILURE [None]
